FAERS Safety Report 6952129-1 (Version None)
Quarter: 2010Q3

REPORT INFORMATION
  Report Type: 
  Country: None (occurrence: None)
  Receive Date: 20100829
  Receipt Date: 20100426
  Transmission Date: 20110219
  Serious: No
  Sender: FDA-Public Use
  Company Number: US-ABBOTT-10P-163-0641640-00

PATIENT
  Sex: Male
  Weight: 72.64 kg

DRUGS (10)
  1. NIASPAN [Suspect]
     Indication: HIGH DENSITY LIPOPROTEIN DECREASED
     Dosage: EVERY NIGHT
     Dates: start: 20100420
  2. ADVAIR DISKUS 100/50 [Concomitant]
     Indication: EMPHYSEMA
     Dosage: DISKUS
     Route: 055
  3. ALBUTEROL [Concomitant]
     Indication: EMPHYSEMA
  4. ASPIRIN [Concomitant]
     Indication: CORONARY ARTERY BYPASS
  5. SIMVASTATIN [Concomitant]
     Indication: BLOOD CHOLESTEROL ABNORMAL
  6. FOLIC ACID [Concomitant]
     Indication: BLOOD DISORDER
  7. LISINOPRIL [Concomitant]
     Indication: PRODUCT USED FOR UNKNOWN INDICATION
  8. OXYGEN [Concomitant]
     Indication: EMPHYSEMA
     Dosage: WEARS 24 HOURS A DAY
  9. IRON [Concomitant]
     Indication: PRODUCT USED FOR UNKNOWN INDICATION
  10. BETA-VAL [Concomitant]
     Indication: SKIN EXFOLIATION

REACTIONS (2)
  - EYE IRRITATION [None]
  - FLUSHING [None]
